FAERS Safety Report 10763965 (Version 1)
Quarter: 2015Q1

REPORT INFORMATION
  Report Type: Spontaneous
  Country: JP (occurrence: JP)
  Receive Date: 20150204
  Receipt Date: 20150204
  Transmission Date: 20150721
  Serious: Yes (Other)
  Sender: FDA-Public Use
  Company Number: ALJP2015JP000461

PATIENT
  Age: 60 Year
  Sex: Female

DRUGS (1)
  1. DUOTRAV POLYQUAD [Suspect]
     Active Substance: TIMOLOL MALEATE\TRAVOPROST
     Dosage: 1 UNK, UNK
     Route: 047
     Dates: start: 20150122, end: 20150127

REACTIONS (3)
  - Loss of consciousness [Recovered/Resolved]
  - Chest discomfort [Unknown]
  - Chest pain [Unknown]

NARRATIVE: CASE EVENT DATE: 20150122
